FAERS Safety Report 7155013-6 (Version None)
Quarter: 2010Q4

REPORT INFORMATION
  Report Type: 
  Country: None (occurrence: None)
  Receive Date: 20101214
  Receipt Date: 20091117
  Transmission Date: 20110411
  Serious: No
  Sender: FDA-Public Use
  Company Number: US-AMGEN-TCS375365

PATIENT

DRUGS (2)
  1. ENBREL [Suspect]
     Indication: RHEUMATOID ARTHRITIS
     Dosage: 50 MG, QWK
     Route: 058
     Dates: start: 20080901
  2. METHOTREXATE [Concomitant]
     Dosage: UNK UNK, UNK

REACTIONS (6)
  - ANAL FISSURE [None]
  - ARTHRITIS [None]
  - FATIGUE [None]
  - HAEMORRHOIDS [None]
  - INFECTION [None]
  - JOINT SWELLING [None]
